FAERS Safety Report 11439208 (Version 1)
Quarter: 2015Q3

REPORT INFORMATION
  Report Type: Spontaneous
  Country: AU (occurrence: None)
  Receive Date: 20150828
  Receipt Date: 20150828
  Transmission Date: 20151125
  Serious: Yes (Other)
  Sender: FDA-Public Use
  Company Number: COR_00370_2015

PATIENT
  Age: 77 Year
  Sex: Male

DRUGS (3)
  1. ETOPOSIDE (ETOPOSIDE) [Suspect]
     Active Substance: ETOPOSIDE
     Indication: NON-SMALL CELL LUNG CANCER
     Dosage: (50 MG/M2, DAY 1-5, 29-33)
  2. CISPLATIN (CISPLATIN) [Suspect]
     Active Substance: CISPLATIN
     Indication: NON-SMALL CELL LUNG CANCER
     Dosage: (50 MG/M2, DAY 1, 8, 29, 36)
  3. RADIOTHERAPY (RADIOTHERAPY) [Suspect]
     Active Substance: RADIATION THERAPY
     Indication: NON-SMALL CELL LUNG CANCER
     Dosage: (60 GY IN 30 FRACTIONS)

REACTIONS (4)
  - Lower respiratory tract infection [None]
  - Pleural fibrosis [None]
  - Pleural effusion [None]
  - Acute respiratory failure [None]
